FAERS Safety Report 6174968-X (Version None)
Quarter: 2009Q2

REPORT INFORMATION
  Report Type: 
  Country: None (occurrence: None)
  Receive Date: 20090430
  Receipt Date: 20081029
  Transmission Date: 20091009
  Serious: No
  Sender: FDA-Public Use
  Company Number: US-ASTRAZENECA-2008UW24203

PATIENT
  Age: 71 Year
  Sex: Male

DRUGS (2)
  1. NEXIUM [Suspect]
     Indication: DYSPHAGIA
     Route: 048
  2. INSULIN [Concomitant]

REACTIONS (3)
  - HEPATIC STEATOSIS [None]
  - INSOMNIA [None]
  - PRURITUS [None]
